FAERS Safety Report 25747313 (Version 1)
Quarter: 2025Q3

REPORT INFORMATION
  Report Type: Spontaneous
  Country: GB (occurrence: GB)
  Receive Date: 20250901
  Receipt Date: 20250901
  Transmission Date: 20251021
  Serious: Yes (Other)
  Sender: AMGEN
  Company Number: GB-AMGEN-GBRSP2025168978

PATIENT
  Sex: Female

DRUGS (1)
  1. USTEKINUMAB [Suspect]
     Active Substance: USTEKINUMAB
     Indication: Colitis ulcerative
     Dosage: 90 MILLIGRAM, Q8WK
     Route: 065

REACTIONS (2)
  - Colitis ulcerative [Unknown]
  - Maternal exposure during pregnancy [Unknown]
